FAERS Safety Report 10332183 (Version 1)
Quarter: 2014Q3

REPORT INFORMATION
  Report Type: Spontaneous
  Country: GB (occurrence: GB)
  Receive Date: 20140722
  Receipt Date: 20140722
  Transmission Date: 20150326
  Serious: Yes (Disabling)
  Sender: FDA-Public Use
  Company Number: GB-TEVA-493832ISR

PATIENT
  Age: 85 Year
  Sex: Female
  Weight: 51 kg

DRUGS (9)
  1. BECONASE AQ [Concomitant]
     Active Substance: BECLOMETHASONE DIPROPIONATE MONOHYDRATE
     Dates: start: 20140407, end: 20140505
  2. FUROSEMIDE. [Suspect]
     Active Substance: FUROSEMIDE
     Dates: start: 20140620
  3. SERETIDE [Concomitant]
     Active Substance: FLUTICASONE FUROATE\SALMETEROL XINAFOATE
     Dates: start: 20140203
  4. SALBUTAMOL [Concomitant]
     Active Substance: ALBUTEROL
     Dates: start: 20140407, end: 20140505
  5. SIMVASTATIN. [Concomitant]
     Active Substance: SIMVASTATIN
     Dates: start: 20140407, end: 20140505
  6. SIMVASTATIN. [Concomitant]
     Active Substance: SIMVASTATIN
     Dates: start: 20140519, end: 20140616
  7. ATENOLOL. [Concomitant]
     Active Substance: ATENOLOL
     Dates: start: 20140519, end: 20140616
  8. BECONASE AQ [Concomitant]
     Active Substance: BECLOMETHASONE DIPROPIONATE MONOHYDRATE
     Dates: start: 20140519, end: 20140616
  9. QUININE [Concomitant]
     Active Substance: QUININE
     Dates: start: 20140407, end: 20140505

REACTIONS (2)
  - Abdominal discomfort [Unknown]
  - Headache [Recovered/Resolved]

NARRATIVE: CASE EVENT DATE: 20140701
